FAERS Safety Report 16011375 (Version 1)
Quarter: 2019Q1

REPORT INFORMATION
  Report Type: Spontaneous
  Country: US (occurrence: US)
  Receive Date: 20190227
  Receipt Date: 20190227
  Transmission Date: 20190418
  Serious: No
  Sender: FDA-Public Use
  Company Number: US-TEVA-2019-US-1005822

PATIENT
  Age: 71 Year
  Sex: Female

DRUGS (2)
  1. CLOZAPINE. [Suspect]
     Active Substance: CLOZAPINE
     Dosage: DOSE 100 MG FOR YEARS
     Route: 065
  2. CLOZAPINE. [Suspect]
     Active Substance: CLOZAPINE
     Dosage: DOSE 50 MG FOR 6 MONTHS
     Route: 065

REACTIONS (3)
  - Affective disorder [Unknown]
  - Metabolic disorder [Unknown]
  - Weight increased [Unknown]
